FAERS Safety Report 10575397 (Version 1)
Quarter: 2014Q4

REPORT INFORMATION
  Report Type: Spontaneous
  Country: TN (occurrence: TN)
  Receive Date: 20141111
  Receipt Date: 20141111
  Transmission Date: 20150529
  Serious: Yes (Congenital Anomaly)
  Sender: FDA-Public Use
  Company Number: TN-ROCHE-1486552

PATIENT

DRUGS (2)
  1. MABTHERA [Suspect]
     Active Substance: RITUXIMAB
     Indication: PRODUCT USED FOR UNKNOWN INDICATION
     Route: 064
  2. MABTHERA [Suspect]
     Active Substance: RITUXIMAB
     Dosage: 2 INFUSIONS OF MABTHERA 1000MG WITH IN 15 DAY AND FIRST INFUSION BY THE END OF MAY. SECOND INFUSION
     Route: 064

REACTIONS (2)
  - Foetal exposure during pregnancy [Unknown]
  - Deafness congenital [Unknown]
